FAERS Safety Report 6641533-7 (Version None)
Quarter: 2010Q1

REPORT INFORMATION
  Report Type: 
  Country: None (occurrence: None)
  Receive Date: 20100317
  Receipt Date: 20100317
  Transmission Date: 20100710
  Serious: Yes (Other)
  Sender: FDA-Public Use
  Company Number: None

PATIENT
  Age: 33 Year
  Sex: Female
  Weight: 113.3993 kg

DRUGS (10)
  1. GEODON [Suspect]
     Indication: BIPOLAR I DISORDER
     Dosage: 20MG 1/DAY PO
     Route: 048
     Dates: start: 20090901, end: 20100319
  2. SYNTHROID [Concomitant]
  3. ADDERALL XR 10 [Concomitant]
  4. LITHIUM CARBONATE [Concomitant]
  5. DOXYCYCLINE [Concomitant]
  6. CYMBALTA [Concomitant]
  7. AMBIEN [Concomitant]
  8. PROAIR HFA [Concomitant]
  9. SINGULAIR [Concomitant]
  10. CLARITIN [Concomitant]

REACTIONS (8)
  - CHILLS [None]
  - DRUG DOSE OMISSION [None]
  - DRUG WITHDRAWAL SYNDROME [None]
  - DYSPEPSIA [None]
  - HEADACHE [None]
  - MUSCULOSKELETAL STIFFNESS [None]
  - PAIN [None]
  - PYREXIA [None]
